FAERS Safety Report 17088485 (Version 1)
Quarter: 2019Q4

REPORT INFORMATION
  Report Type: Report from Study
  Country: GT (occurrence: GT)
  Receive Date: 20191128
  Receipt Date: 20191128
  Transmission Date: 20200122
  Serious: Yes (Hospitalization, Other)
  Sender: FDA-Public Use
  Company Number: NVSC2019GT034402

PATIENT
  Age: 95 Year
  Sex: Female
  Weight: 95 kg

DRUGS (6)
  1. GLISULIN [Concomitant]
     Indication: DIABETES MELLITUS
     Dosage: 0.25 DF, QD
     Route: 048
  2. EXFORGE [Suspect]
     Active Substance: AMLODIPINE BESYLATE\VALSARTAN
     Dosage: 1 DF (AMLODIPINE 5MG / VALSARTAN 320MG) 2.5/80 MG
     Route: 065
     Dates: start: 20191108
  3. EXFORGE [Suspect]
     Active Substance: AMLODIPINE BESYLATE\VALSARTAN
     Indication: HYPERTENSION
     Dosage: 1 DF (AMLODIPINE 5MG / VALSARTAN 160MG)
     Route: 065
     Dates: end: 20191103
  4. EXFORGE [Suspect]
     Active Substance: AMLODIPINE BESYLATE\VALSARTAN
     Dosage: (AMLODIPINE 5 MG, VALSARTAN 160MG)
     Route: 065
     Dates: start: 20191121
  5. EXFORGE [Suspect]
     Active Substance: AMLODIPINE BESYLATE\VALSARTAN
     Dosage: (AMLODIPINE 5 MG, VALSARTAN 320 MG)
     Route: 065
     Dates: end: 20191120
  6. EUTIROX [Concomitant]
     Active Substance: LEVOTHYROXINE SODIUM
     Indication: THYROID DISORDER
     Dosage: 50 MG, QD (100 MG AND SPLITS THE TABLET IN HALF)
     Route: 048
     Dates: start: 2018

REACTIONS (4)
  - Cardiac failure [Recovering/Resolving]
  - Cardiomegaly [Recovering/Resolving]
  - Hypertension [Recovering/Resolving]
  - Arrhythmia [Recovering/Resolving]

NARRATIVE: CASE EVENT DATE: 20191104
